FAERS Safety Report 8339105-1 (Version None)
Quarter: 2012Q2

REPORT INFORMATION
  Report Type: 
  Country: None (occurrence: None)
  Receive Date: 20120507
  Receipt Date: 20120501
  Transmission Date: 20120825
  Serious: Yes (Other)
  Sender: FDA-Public Use
  Company Number: US-PFIZER INC-2012107112

PATIENT
  Sex: Male

DRUGS (2)
  1. EFFEXOR [Suspect]
     Dosage: 75 MG, 2X/DAY
  2. LAMICTAL [Suspect]
     Dosage: 150 MG, UNK

REACTIONS (1)
  - CONVULSION [None]
